FAERS Safety Report 13601237 (Version 1)
Quarter: 2017Q2

REPORT INFORMATION
  Report Type: Spontaneous
  Country: US (occurrence: US)
  Receive Date: 20170601
  Receipt Date: 20170601
  Transmission Date: 20170830
  Serious: No
  Sender: FDA-Public Use
  Company Number: US-BIOGEN-2017BI00407580

PATIENT
  Sex: Female

DRUGS (1)
  1. TECFIDERA [Suspect]
     Active Substance: DIMETHYL FUMARATE
     Indication: MULTIPLE SCLEROSIS
     Route: 065
     Dates: start: 20160726

REACTIONS (7)
  - Neck pain [Unknown]
  - Pruritus generalised [Unknown]
  - Local swelling [Unknown]
  - Feeling hot [Unknown]
  - Polymenorrhoea [Unknown]
  - Abdominal pain upper [Unknown]
  - Erythema [Unknown]
